FAERS Safety Report 17774119 (Version 1)
Quarter: 2020Q2

REPORT INFORMATION
  Report Type: Spontaneous
  Country: CN (occurrence: CN)
  Receive Date: 20200513
  Receipt Date: 20200513
  Transmission Date: 20200714
  Serious: Yes (Other)
  Sender: FDA-Public Use
  Company Number: CN-SUN PHARMACEUTICAL INDUSTRIES LTD-2020R1-245868

PATIENT
  Age: 79 Year
  Sex: Male

DRUGS (2)
  1. ARSENIC TRIOXIDE. [Suspect]
     Active Substance: ARSENIC TRIOXIDE
     Indication: ACUTE LEUKAEMIA
     Dosage: 0.15 G/KG, DAILY
     Route: 065
  2. DECITABINE. [Suspect]
     Active Substance: DECITABINE
     Indication: ACUTE LEUKAEMIA
     Dosage: 20 MILLIGRAM/SQ. METER, QD
     Route: 042

REACTIONS (5)
  - Pruritus [Recovered/Resolved]
  - Rash [Recovered/Resolved]
  - Pneumonia [Unknown]
  - Hypotension [Recovered/Resolved]
  - Therapy non-responder [Unknown]
